FAERS Safety Report 25298261 (Version 2)
Quarter: 2025Q3

REPORT INFORMATION
  Report Type: Spontaneous
  Country: EU (occurrence: EU)
  Receive Date: 20250512
  Receipt Date: 20250810
  Transmission Date: 20251021
  Serious: Yes (Hospitalization)
  Sender: ALEXION PHARMACEUTICALS
  Company Number: EU-AstraZeneca-CH-00864631A

PATIENT
  Sex: Male
  Weight: 95 kg

DRUGS (9)
  1. DAPAGLIFLOZIN [Suspect]
     Active Substance: DAPAGLIFLOZIN
     Indication: Chronic kidney disease
     Dates: start: 20240402
  2. UNSPECIFIED INGREDIENT [Concomitant]
     Active Substance: UNSPECIFIED INGREDIENT
     Route: 065
  3. CEFTRIAXONE [Concomitant]
     Active Substance: CEFTRIAXONE
     Route: 065
  4. CEFTRIAXONE [Concomitant]
     Active Substance: CEFTRIAXONE
     Route: 065
  5. CEFUROXIME [Concomitant]
     Active Substance: CEFUROXIME
     Route: 065
  6. CEFUROXIME [Concomitant]
     Active Substance: CEFUROXIME
     Route: 065
  7. CLARITHROMYCIN [Concomitant]
     Active Substance: CLARITHROMYCIN
     Route: 065
  8. LEVOFLOXACIN [Concomitant]
     Active Substance: LEVOFLOXACIN
     Route: 065
  9. Remis [Concomitant]
     Route: 065

REACTIONS (1)
  - Erysipelas [Recovered/Resolved]

NARRATIVE: CASE EVENT DATE: 20241201
